FAERS Safety Report 6694084-8 (Version None)
Quarter: 2010Q2

REPORT INFORMATION
  Report Type: 
  Country: None (occurrence: None)
  Receive Date: 20100423
  Receipt Date: 20100414
  Transmission Date: 20101027
  Serious: Yes (Life-Threatening, Hospitalization, Other)
  Sender: FDA-Public Use
  Company Number: GB-MPIJNJ-2010-01670

PATIENT

DRUGS (12)
  1. VELCADE [Suspect]
     Indication: MULTIPLE MYELOMA
     Dosage: 2.6 MG, UNK
     Route: 042
     Dates: start: 20100111, end: 20100114
  2. VELCADE [Suspect]
     Dosage: 2.6 UNK, UNK
     Route: 042
     Dates: start: 20100126, end: 20100225
  3. RAMIPRIL [Concomitant]
     Dosage: UNK
     Dates: start: 20100101
  4. RAMIPRIL [Concomitant]
     Dosage: 2.5 MG, UNK
     Route: 048
     Dates: start: 20100208, end: 20100226
  5. BUMETANIDE [Concomitant]
     Dosage: 1 MG, UNK
     Route: 048
     Dates: start: 20100208
  6. SPIRONOLACTONE [Concomitant]
     Dosage: 25 MG, UNK
     Route: 048
     Dates: start: 20100212
  7. LEVOTHYROXINE [Concomitant]
     Indication: HYPOTHYROIDISM
     Dosage: 100 UG, UNK
  8. PAMIDRONIC ACID [Concomitant]
     Dosage: UNK
     Dates: end: 20100107
  9. ATORVASTATIN [Concomitant]
     Dosage: UNK
     Dates: start: 20100101
  10. BISOPROLOL [Concomitant]
     Dosage: UNK
     Dates: start: 20100101
  11. FUROSEMIDE [Concomitant]
     Dosage: UNK
     Dates: start: 20100101
  12. OMACOR                             /00931501/ [Concomitant]
     Dosage: UNK
     Dates: start: 20100101

REACTIONS (4)
  - CARDIAC FAILURE [None]
  - CONGESTIVE CARDIOMYOPATHY [None]
  - MYOCARDIAL INFARCTION [None]
  - RENAL FAILURE ACUTE [None]
